FAERS Safety Report 6225976-1 (Version None)
Quarter: 2009Q2

REPORT INFORMATION
  Report Type: 
  Country: None (occurrence: None)
  Receive Date: 20090612
  Receipt Date: 20090506
  Transmission Date: 20091009
  Serious: Yes (Hospitalization)
  Sender: FDA-Public Use
  Company Number: US-ABBOTT-09P-163-0571871-00

PATIENT
  Sex: Female

DRUGS (5)
  1. HUMIRA [Suspect]
     Indication: PSORIASIS
     Route: 058
     Dates: start: 20081209, end: 20090401
  2. HUMIRA [Suspect]
     Route: 058
     Dates: start: 20090506
  3. METOPROLOL SUCCINATE [Concomitant]
     Indication: HYPERTENSION
     Route: 048
  4. ASPIRIN [Concomitant]
     Indication: DRUG USE FOR UNKNOWN INDICATION
     Route: 048
  5. AMLODIPINE BESYLATE AND BENAZEPRIL HCL [Concomitant]
     Indication: BLOOD PRESSURE
     Dosage: 5/20 DAILY
     Route: 048

REACTIONS (10)
  - ERYTHEMA [None]
  - FUNGAL INFECTION [None]
  - FURUNCLE [None]
  - HYPERAESTHESIA [None]
  - MOBILITY DECREASED [None]
  - PAIN [None]
  - PRURITUS [None]
  - PSORIASIS [None]
  - SKIN EXFOLIATION [None]
  - WEIGHT DECREASED [None]
